FAERS Safety Report 11607615 (Version 2)
Quarter: 2015Q4

REPORT INFORMATION
  Report Type: Spontaneous
  Country: JP (occurrence: JP)
  Receive Date: 20151007
  Receipt Date: 20151029
  Transmission Date: 20160304
  Serious: Yes (Hospitalization, Other)
  Sender: FDA-Public Use
  Company Number: JP-009507513-1510JPN003356

PATIENT
  Age: 28 Year
  Sex: Male

DRUGS (8)
  1. REMERON [Suspect]
     Active Substance: MIRTAZAPINE
     Dosage: DAILY DOSAGE UNKNOWN
     Route: 048
     Dates: start: 20130510, end: 20140611
  2. ZYPREXA [Suspect]
     Active Substance: OLANZAPINE
     Dosage: DAILY DOSAGE UNKNOWN
     Route: 048
  3. REMERON [Suspect]
     Active Substance: MIRTAZAPINE
     Dosage: DAILY DOSAGE UNKNOWN
     Route: 048
     Dates: start: 20140612, end: 20140612
  4. REMERON [Suspect]
     Active Substance: MIRTAZAPINE
     Dosage: ONE WEEK^S DOSAGE EACH TIME
     Route: 048
     Dates: start: 2015
  5. DIAZEPAM. [Suspect]
     Active Substance: DIAZEPAM
     Dosage: DAILY DOSAGE UNKNOWN
     Route: 048
  6. REMERON [Suspect]
     Active Substance: MIRTAZAPINE
     Indication: SUICIDE ATTEMPT
     Dosage: 150 MG; DIVIDED DOSE, FREQUENCY UNKNOWN
     Route: 048
     Dates: start: 20150903, end: 20150903
  7. REMERON [Suspect]
     Active Substance: MIRTAZAPINE
     Dosage: DAILY DOSAGE UNKNOWN
     Route: 048
     Dates: start: 20121201
  8. LENDORMIN [Suspect]
     Active Substance: BROTIZOLAM
     Dosage: DAILY DOSAGE UNKNOWN
     Route: 048

REACTIONS (4)
  - Adverse event [Unknown]
  - Overdose [Unknown]
  - Suicide attempt [Unknown]
  - Intentional overdose [Unknown]

NARRATIVE: CASE EVENT DATE: 20130111
